FAERS Safety Report 20006416 (Version 2)
Quarter: 2021Q4

REPORT INFORMATION
  Report Type: Spontaneous
  Country: JP (occurrence: JP)
  Receive Date: 20211028
  Receipt Date: 20211126
  Transmission Date: 20220303
  Serious: Yes (Hospitalization, Other)
  Sender: FDA-Public Use
  Company Number: JP-TAKEDA-2021TJP108870

PATIENT
  Age: 7 Decade
  Sex: Male

DRUGS (1)
  1. CABOMETYX [Suspect]
     Active Substance: CABOZANTINIB S-MALATE
     Indication: Renal cell carcinoma recurrent
     Dosage: 40 MG
     Route: 048
     Dates: start: 20210428, end: 20210922

REACTIONS (3)
  - Interstitial lung disease [Recovering/Resolving]
  - Renal cell carcinoma recurrent [Unknown]
  - Disease progression [Unknown]

NARRATIVE: CASE EVENT DATE: 20210922
